FAERS Safety Report 18198384 (Version 1)
Quarter: 2020Q3

REPORT INFORMATION
  Report Type: Spontaneous
  Country: GB (occurrence: GB)
  Receive Date: 20200826
  Receipt Date: 20200826
  Transmission Date: 20201103
  Serious: Yes (Other)
  Sender: FDA-Public Use
  Company Number: GB-TEVA-2020-GB-1819592

PATIENT
  Age: 61 Year
  Sex: Female

DRUGS (1)
  1. PACLITAXEL. [Suspect]
     Active Substance: PACLITAXEL
     Indication: BREAST CANCER
     Dosage: UNIT DODE: 132 MILLIGRAM
     Route: 042
     Dates: start: 20200628

REACTIONS (1)
  - Cancer fatigue [Recovered/Resolved with Sequelae]

NARRATIVE: CASE EVENT DATE: 20200630
